FAERS Safety Report 13343927 (Version 5)
Quarter: 2017Q2

REPORT INFORMATION
  Report Type: Report from Study
  Country: US (occurrence: US)
  Receive Date: 20170316
  Receipt Date: 20170626
  Transmission Date: 20170830
  Serious: Yes (Hospitalization)
  Sender: FDA-Public Use
  Company Number: US-ACTELION-A-US2017-151082

PATIENT
  Age: 70 Year
  Sex: Female
  Weight: 66.21 kg

DRUGS (6)
  1. OPSUMIT [Suspect]
     Active Substance: MACITENTAN
     Indication: PULMONARY HYPERTENSION
     Dosage: 10 MG, QD
     Route: 048
  2. TYVASO [Suspect]
     Active Substance: TREPROSTINIL
     Indication: PULMONARY HYPERTENSION
     Dosage: 9 BREATHS QID
     Route: 055
     Dates: start: 20140604
  3. COUMADIN [Concomitant]
     Active Substance: WARFARIN SODIUM
  4. SILDENAFIL CITRATE. [Concomitant]
     Active Substance: SILDENAFIL CITRATE
  5. AMLODIPINE [Concomitant]
     Active Substance: AMLODIPINE BESYLATE
  6. ADCIRCA [Concomitant]
     Active Substance: TADALAFIL

REACTIONS (9)
  - Dialysis [Unknown]
  - Condition aggravated [Unknown]
  - Cognitive disorder [Unknown]
  - Parkinson^s disease [Unknown]
  - Renal disorder [Unknown]
  - Hallucination [Unknown]
  - Dehydration [Unknown]
  - Vomiting [Unknown]
  - Drug dose omission [Unknown]
